FAERS Safety Report 7943201-8 (Version None)
Quarter: 2011Q4

REPORT INFORMATION
  Report Type: 
  Country: None (occurrence: None)
  Receive Date: 20111128
  Receipt Date: 20111102
  Transmission Date: 20120403
  Serious: Yes (Other)
  Sender: FDA-Public Use
  Company Number: PHHY2011CH097337

PATIENT
  Sex: Female

DRUGS (3)
  1. INSULIN [Concomitant]
  2. EXFORGE [Suspect]
     Indication: HYPERTONIA
     Dosage: UNK,
  3. INSULIN [Concomitant]

REACTIONS (12)
  - HEADACHE [None]
  - MALAISE [None]
  - HYPERSENSITIVITY [None]
  - BRONCHITIS [None]
  - NASAL CONGESTION [None]
  - PYREXIA [None]
  - COUGH [None]
  - LUNG INFECTION [None]
  - RHINITIS [None]
  - OEDEMA MUCOSAL [None]
  - PHARYNGITIS [None]
  - SINUSITIS [None]
